FAERS Safety Report 7889191-8 (Version None)
Quarter: 2011Q4

REPORT INFORMATION
  Report Type: 
  Country: None (occurrence: None)
  Receive Date: 20111103
  Receipt Date: 20111021
  Transmission Date: 20120403
  Serious: Yes (Life-Threatening, Hospitalization)
  Sender: FDA-Public Use
  Company Number: US-BAYER-2010-004843

PATIENT
  Age: 30 Year
  Sex: Female
  Weight: 69.841 kg

DRUGS (12)
  1. ZOCOR [Concomitant]
  2. TYLENOL-500 [Concomitant]
  3. YAZ [Suspect]
     Indication: CONTRACEPTION
     Dosage: UNK
     Dates: start: 20080401
  4. MIDRIN [Concomitant]
     Dosage: UNK
     Dates: end: 20081204
  5. YAZ [Suspect]
     Indication: ACNE
  6. COLACE [Concomitant]
  7. SIMVASTATIN [Concomitant]
  8. DURADIN [Concomitant]
  9. ERRIN [Concomitant]
     Dosage: UNK
     Dates: start: 20080101, end: 20090101
  10. ASPIRIN [Concomitant]
  11. NICODERM [Concomitant]
  12. INDERAL [Concomitant]

REACTIONS (21)
  - VISUAL IMPAIRMENT [None]
  - EMOTIONAL DISTRESS [None]
  - ANXIETY [None]
  - COGNITIVE DISORDER [None]
  - PARAESTHESIA [None]
  - PAIN [None]
  - NAUSEA [None]
  - INJURY [None]
  - EXPRESSIVE LANGUAGE DISORDER [None]
  - CEREBROVASCULAR ACCIDENT [None]
  - MIGRAINE [None]
  - BLINDNESS [None]
  - PLANTAR FASCIITIS [None]
  - SYNCOPE [None]
  - IRRITABILITY [None]
  - HYPOAESTHESIA [None]
  - GAIT DISTURBANCE [None]
  - HEMIPLEGIA [None]
  - SPEECH DISORDER [None]
  - HEMIPARESIS [None]
  - PANIC ATTACK [None]
